FAERS Safety Report 8066581-4 (Version None)
Quarter: 2012Q1

REPORT INFORMATION
  Report Type: 
  Country: None (occurrence: None)
  Receive Date: 20120124
  Receipt Date: 20120117
  Transmission Date: 20120608
  Serious: Yes (Other)
  Sender: FDA-Public Use
  Company Number: PHHY2011KR110130

PATIENT
  Sex: Female

DRUGS (1)
  1. EXJADE [Suspect]
     Indication: IRON OVERLOAD
     Route: 048
     Dates: start: 20081219

REACTIONS (4)
  - PNEUMONIA [None]
  - OEDEMA PERIPHERAL [None]
  - NASOPHARYNGITIS [None]
  - PAIN IN EXTREMITY [None]
